FAERS Safety Report 8095765-4 (Version None)
Quarter: 2012Q1

REPORT INFORMATION
  Report Type: 
  Country: None (occurrence: None)
  Receive Date: 20120129
  Receipt Date: 20111212
  Transmission Date: 20120608
  Serious: Yes (Hospitalization)
  Sender: FDA-Public Use
  Company Number: US-ABBOTT-11P-163-0883458-00

PATIENT
  Age: 43 Year
  Sex: Male

DRUGS (3)
  1. AZATHIOPRINE [Concomitant]
     Indication: PRODUCT USED FOR UNKNOWN INDICATION
  2. PERCOCET [Concomitant]
     Indication: PAIN
     Dosage: 5/325 1 -2 Q 6 HRS PRN
  3. HUMIRA [Suspect]
     Indication: CROHN'S DISEASE
     Dates: start: 20111028

REACTIONS (2)
  - DEHYDRATION [None]
  - TESTICULAR ABSCESS [None]
